FAERS Safety Report 9678062 (Version 1)
Quarter: 2013Q4

REPORT INFORMATION
  Report Type: Spontaneous
  Country: US (occurrence: US)
  Receive Date: 20131108
  Receipt Date: 20131108
  Transmission Date: 20140711
  Serious: No
  Sender: FDA-Public Use
  Company Number: US-009507513-1311USA001407

PATIENT
  Sex: Female

DRUGS (2)
  1. IVEMEND [Suspect]
     Dosage: 150 MG, ON DAY ONE OF THE CYCLE
     Route: 042
  2. DEXAMETHASONE [Suspect]
     Dosage: CYCLE 1
     Route: 042

REACTIONS (3)
  - Vomiting [Not Recovered/Not Resolved]
  - Nausea [Not Recovered/Not Resolved]
  - Drug hypersensitivity [Not Recovered/Not Resolved]
